FAERS Safety Report 13956353 (Version 1)
Quarter: 2017Q3

REPORT INFORMATION
  Report Type: Spontaneous
  Country: US (occurrence: US)
  Receive Date: 20170911
  Receipt Date: 20170911
  Transmission Date: 20171128
  Serious: No
  Sender: FDA-Public Use
  Company Number: US-009507513-1708USA012609

PATIENT
  Sex: Male

DRUGS (1)
  1. ASMANEX [Suspect]
     Active Substance: MOMETASONE FUROATE
     Dosage: 220MCG/2 PUFFS/TWICE A DAY AS NEEDED
     Route: 048

REACTIONS (4)
  - Extra dose administered [Unknown]
  - Device malfunction [Unknown]
  - Product quality issue [Unknown]
  - No adverse event [Unknown]
